FAERS Safety Report 19634025 (Version 6)
Quarter: 2021Q4

REPORT INFORMATION
  Report Type: Spontaneous
  Country: CA (occurrence: CA)
  Receive Date: 20210730
  Receipt Date: 20211115
  Transmission Date: 20220303
  Serious: Yes (Hospitalization)
  Sender: FDA-Public Use
  Company Number: CA-CELLTRION INC.-2021CA010008

PATIENT

DRUGS (8)
  1. INFLECTRA [Suspect]
     Active Substance: INFLIXIMAB-DYYB
     Indication: Colitis ulcerative
     Dosage: 300 MG WEEK 0 2 6 AND THEN EVERY 8 WEEKS
     Route: 042
     Dates: start: 20210424, end: 20211025
  2. INFLECTRA [Suspect]
     Active Substance: INFLIXIMAB-DYYB
     Dosage: 300 MG WEEK 0 2 6 AND THEN EVERY 8 WEEKS
     Route: 042
     Dates: start: 20210426
  3. INFLECTRA [Suspect]
     Active Substance: INFLIXIMAB-DYYB
     Dosage: 300 MG WEEK 0 2 6 AND THEN EVERY 8 WEEKS
     Route: 042
     Dates: start: 20210526
  4. INFLECTRA [Suspect]
     Active Substance: INFLIXIMAB-DYYB
     Dosage: 300 MG WEEK 0 2 6 AND THEN EVERY 8 WEEKS
     Route: 042
     Dates: start: 20210719
  5. INFLECTRA [Suspect]
     Active Substance: INFLIXIMAB-DYYB
     Dosage: 300 MG WEEK 0 2 6 AND THEN EVERY 8 WEEKS
     Route: 042
     Dates: start: 20210830
  6. INFLECTRA [Suspect]
     Active Substance: INFLIXIMAB-DYYB
     Dosage: 300 MG WEEK 0 2 6 AND THEN EVERY 8 WEEKS
     Route: 042
     Dates: start: 20210927, end: 20210927
  7. INFLECTRA [Suspect]
     Active Substance: INFLIXIMAB-DYYB
     Dosage: 300 MG WEEK 0 2 6 AND THEN EVERY 8 WEEKS
     Route: 042
     Dates: start: 20211025
  8. PREDNISONE [Concomitant]
     Active Substance: PREDNISONE
     Dosage: 45 MG
     Route: 048

REACTIONS (8)
  - Condition aggravated [Not Recovered/Not Resolved]
  - Drug ineffective [Unknown]
  - Off label use [Unknown]
  - Inappropriate schedule of product administration [Unknown]
  - Off label use [Unknown]
  - Intentional product use issue [Unknown]
  - Weight decreased [Not Recovered/Not Resolved]
  - Weight increased [Unknown]

NARRATIVE: CASE EVENT DATE: 20210101
